FAERS Safety Report 24029552 (Version 2)
Quarter: 2024Q3

REPORT INFORMATION
  Report Type: Spontaneous
  Country: BY (occurrence: BY)
  Receive Date: 20240628
  Receipt Date: 20240701
  Transmission Date: 20241016
  Serious: Yes (Death)
  Sender: JOHNSON AND JOHNSON
  Company Number: BY-JNJFOC-20240670870

PATIENT
  Age: 66 Year
  Sex: Male
  Weight: 62 kg

DRUGS (11)
  1. BEDAQUILINE [Suspect]
     Active Substance: BEDAQUILINE
     Indication: Tuberculosis
     Dosage: FOR 2 WEEKS
     Route: 048
     Dates: start: 20220929
  2. BEDAQUILINE [Suspect]
     Active Substance: BEDAQUILINE
     Dosage: FOR 2 WEEKS
     Route: 048
     Dates: end: 20230315
  3. PRETOMANID [Suspect]
     Active Substance: PRETOMANID
     Indication: Tuberculosis
     Route: 048
     Dates: start: 20220929, end: 20230315
  4. LINEZOLID [Suspect]
     Active Substance: LINEZOLID
     Indication: Tuberculosis
     Dosage: FOR 16 WEEKS
     Route: 048
     Dates: start: 20220929
  5. LINEZOLID [Suspect]
     Active Substance: LINEZOLID
     Route: 048
     Dates: end: 20230315
  6. CLOFAZIMINE [Suspect]
     Active Substance: CLOFAZIMINE
     Indication: Tuberculosis
     Route: 048
     Dates: start: 20220929, end: 20230315
  7. METOPROLOL [Concomitant]
     Active Substance: METOPROLOL
     Indication: Cardiac disorder
     Dates: start: 20220922, end: 20230315
  8. PERINDOPRIL [Concomitant]
     Active Substance: PERINDOPRIL
     Indication: Cardiac disorder
     Dosage: 4 MG IN THE MORNING
     Route: 065
     Dates: start: 20220922, end: 20230315
  9. ATORVASTATIN [Concomitant]
     Active Substance: ATORVASTATIN
     Indication: Cardiac disorder
     Dosage: AT NIGHT
     Dates: start: 20220922, end: 20230315
  10. ASPICARD [Concomitant]
     Indication: Cardiac disorder
     Dosage: AT LUNCH
     Dates: start: 20220922, end: 20230315
  11. SPIRONOLACTONE [Concomitant]
     Active Substance: SPIRONOLACTONE
     Indication: Cardiac disorder
     Dates: start: 20220922, end: 20230315

REACTIONS (1)
  - Acute left ventricular failure [Fatal]

NARRATIVE: CASE EVENT DATE: 20230321
